FAERS Safety Report 7575664-4 (Version None)
Quarter: 2011Q2

REPORT INFORMATION
  Report Type: 
  Country: None (occurrence: None)
  Receive Date: 20110628
  Receipt Date: 20110617
  Transmission Date: 20111010
  Serious: Yes (Hospitalization)
  Sender: FDA-Public Use
  Company Number: FR-BIOGENIDEC-2009BI020943

PATIENT
  Age: 55 Year
  Sex: Female

DRUGS (12)
  1. TYSABRI [Suspect]
     Indication: MULTIPLE SCLEROSIS
     Route: 042
     Dates: start: 20071128
  2. BISOPROLOL [Concomitant]
  3. METFORMIN HCL [Concomitant]
  4. AMITRIPTYLINE HCL [Concomitant]
  5. DIHYDROERGOTAMINE MESYLATE [Concomitant]
  6. ECAZIDE [Concomitant]
  7. IMODIUM [Concomitant]
  8. ACETAMINOPHEN [Concomitant]
  9. EZETIMIBE [Concomitant]
  10. DILTIAZEM [Concomitant]
  11. TIAPRIDAL [Concomitant]
  12. LEXOMIL [Concomitant]

REACTIONS (1)
  - AFFECTIVE DISORDER [None]
